FAERS Safety Report 5104232-9 (Version None)
Quarter: 2006Q3

REPORT INFORMATION
  Report Type: 
  Country: None (occurrence: None)
  Receive Date: 20060911
  Receipt Date: 20060824
  Transmission Date: 20061208
  Serious: Yes (Hospitalization)
  Sender: FDA-Public Use
  Company Number: MEDI-0004556

PATIENT
  Age: 14 Month
  Weight: 12.17 kg

DRUGS (4)
  1. SYNAGIS [Suspect]
     Indication: ANTIVIRAL PROPHYLAXIS
     Dosage: 1 IN 1 M, INTRAMUSCULAR (SEE IMAGE)
     Route: 030
     Dates: start: 20051207, end: 20060209
  2. SYNAGIS [Suspect]
     Indication: ANTIVIRAL PROPHYLAXIS
     Dosage: 1 IN 1 M, INTRAMUSCULAR (SEE IMAGE)
     Route: 030
     Dates: start: 20051207
  3. SYNAGIS [Suspect]
     Indication: ANTIVIRAL PROPHYLAXIS
     Dosage: 1 IN 1 M, INTRAMUSCULAR (SEE IMAGE)
     Route: 030
     Dates: start: 20060112
  4. ALBUTEROL SPIROS [Concomitant]

REACTIONS (2)
  - ASTHMA [None]
  - BRONCHIOLITIS [None]
